FAERS Safety Report 6166045-9 (Version None)
Quarter: 2009Q2

REPORT INFORMATION
  Report Type: 
  Country: None (occurrence: None)
  Receive Date: 20090424
  Receipt Date: 20090317
  Transmission Date: 20091009
  Serious: Yes (Death)
  Sender: FDA-Public Use
  Company Number: JP-JNJFOC-20090405428

PATIENT
  Age: 18 Year
  Sex: Male
  Weight: 48 kg

DRUGS (15)
  1. DORIPENEM MONOHYDRATE [Suspect]
     Indication: DRUG USE FOR UNKNOWN INDICATION
     Route: 065
  2. CELLCEPT [Suspect]
     Indication: GRAFT VERSUS HOST DISEASE
     Route: 065
  3. INOVAN [Concomitant]
  4. DILTIAZAM [Concomitant]
  5. NEOMINOPHAGEN C [Concomitant]
  6. ACYCLOVIR [Concomitant]
  7. SOLU-CORTEF [Concomitant]
  8. ALPROSTADIL [Concomitant]
  9. FRAGMIN [Concomitant]
  10. HALZION [Concomitant]
  11. VFEND [Concomitant]
  12. CIPROXAN [Concomitant]
  13. REBETOL [Concomitant]
  14. URSO 250 [Concomitant]
  15. ZYVOX [Concomitant]

REACTIONS (2)
  - ABDOMINAL DISTENSION [None]
  - ENDOTOXIC SHOCK [None]
